FAERS Safety Report 8889979 (Version 2)
Quarter: 2012Q4

REPORT INFORMATION
  Report Type: 
  Country: GB (occurrence: GB)
  Receive Date: 20121107
  Receipt Date: 20121127
  Transmission Date: 20130627
  Serious: Yes (Hospitalization)
  Sender: FDA-Public Use
  Company Number: GB-TEVA-367329ISR

PATIENT
  Sex: Male

DRUGS (7)
  1. AMIODARONE [Suspect]
     Dosage: 200 Milligram Daily;
     Route: 065
  2. WARFARIN [Concomitant]
     Route: 065
  3. SPF25 (SUNSCREEN) NOT TEVA PRODUCT [Concomitant]
     Route: 065
  4. ZYLORIC [Concomitant]
  5. PANTOPRAZOLE [Concomitant]
  6. FUROSEMIDE [Concomitant]
  7. PERINDOPRIL [Concomitant]

REACTIONS (9)
  - Rash generalised [Recovered/Resolved]
  - Haemorrhage [Recovered/Resolved]
  - Heat rash [Recovered/Resolved]
  - Platelet count decreased [Recovered/Resolved]
  - Rash papular [Recovered/Resolved]
  - Rash [Recovered/Resolved]
  - Wound [Recovered/Resolved]
  - Thrombocytopenia [Recovered/Resolved]
  - Haemorrhage subcutaneous [Recovered/Resolved]
